FAERS Safety Report 18067372 (Version 12)
Quarter: 2023Q1

REPORT INFORMATION
  Report Type: Other
  Country: IT (occurrence: None)
  Receive Date: 20200724
  Receipt Date: 20230217
  Transmission Date: 20230417
  Serious: Yes (Other)
  Sender: FDA-Public Use
  Company Number: IT-ROCHE-2646589

PATIENT
  Age: 36 Year
  Sex: Female

DRUGS (34)
  1. OCRELIZUMAB [Suspect]
     Active Substance: OCRELIZUMAB
     Indication: Multiple sclerosis
     Dosage: 300 MG/250 ML
     Route: 042
     Dates: start: 20190905, end: 20190905
  2. OCRELIZUMAB [Suspect]
     Active Substance: OCRELIZUMAB
     Dosage: 300 MG/250 ML
     Route: 042
     Dates: start: 20190923, end: 20190923
  3. OCRELIZUMAB [Suspect]
     Active Substance: OCRELIZUMAB
     Dosage: 600 MG/500 ML
     Route: 042
     Dates: start: 20200708, end: 20200708
  4. OCRELIZUMAB [Suspect]
     Active Substance: OCRELIZUMAB
     Dosage: 600 MG/500 ML
     Route: 042
     Dates: start: 20210119, end: 20210119
  5. OCRELIZUMAB [Suspect]
     Active Substance: OCRELIZUMAB
     Dosage: 600 MG/500 ML
     Route: 042
     Dates: start: 20210712, end: 20210712
  6. OCRELIZUMAB [Suspect]
     Active Substance: OCRELIZUMAB
     Dosage: 600 MG/500 ML
     Route: 042
     Dates: start: 20220126, end: 20220126
  7. OCRELIZUMAB [Suspect]
     Active Substance: OCRELIZUMAB
     Dosage: 600 MG/500 ML
     Route: 042
     Dates: start: 20220725, end: 20220725
  8. OCRELIZUMAB [Suspect]
     Active Substance: OCRELIZUMAB
     Dosage: 600 MG/500 ML
     Route: 042
     Dates: start: 20230126, end: 20230126
  9. CINNARIZINE [Concomitant]
     Active Substance: CINNARIZINE
     Indication: Headache
     Route: 048
     Dates: start: 20181208, end: 20191216
  10. CINNARIZINE [Concomitant]
     Active Substance: CINNARIZINE
     Route: 048
     Dates: start: 20191216, end: 20200912
  11. PREGABALIN [Concomitant]
     Active Substance: PREGABALIN
     Route: 048
     Dates: start: 20181208, end: 20211013
  12. VENLAFAXINE [Concomitant]
     Active Substance: VENLAFAXINE HYDROCHLORIDE
     Indication: Headache
     Route: 048
     Dates: start: 20191216, end: 20211013
  13. ELETRIPTAN HYDROBROMIDE [Concomitant]
     Active Substance: ELETRIPTAN HYDROBROMIDE
     Indication: Headache
     Dosage: 1 TABLET
     Route: 048
     Dates: start: 20200131, end: 20201012
  14. METHYLPREDNISOLONE [Concomitant]
     Active Substance: METHYLPREDNISOLONE
     Indication: Multiple sclerosis
     Route: 042
     Dates: start: 20200131, end: 20200202
  15. METHYLPREDNISOLONE [Concomitant]
     Active Substance: METHYLPREDNISOLONE
     Route: 048
     Dates: start: 20200203, end: 20200204
  16. SOLU-MEDROL [Concomitant]
     Active Substance: METHYLPREDNISOLONE SODIUM SUCCINATE
     Indication: Premedication
     Route: 042
     Dates: start: 20190905, end: 20190905
  17. SOLU-MEDROL [Concomitant]
     Active Substance: METHYLPREDNISOLONE SODIUM SUCCINATE
     Route: 042
     Dates: start: 20190923, end: 20190923
  18. SOLU-MEDROL [Concomitant]
     Active Substance: METHYLPREDNISOLONE SODIUM SUCCINATE
     Dosage: DATE OF TREATMENT: 19/JAN/2021, 12/JUL/2021
     Route: 042
     Dates: start: 20200708, end: 20200708
  19. SOLU-MEDROL [Concomitant]
     Active Substance: METHYLPREDNISOLONE SODIUM SUCCINATE
     Dosage: FREQUENCY: ONCE BEFORE INFUSION
     Route: 042
     Dates: start: 20210119, end: 20210119
  20. SOLU-MEDROL [Concomitant]
     Active Substance: METHYLPREDNISOLONE SODIUM SUCCINATE
     Dosage: FREQUENCY: ONCE BEFORE INFUSION
     Route: 042
     Dates: start: 20210712, end: 20210712
  21. SOLU-MEDROL [Concomitant]
     Active Substance: METHYLPREDNISOLONE SODIUM SUCCINATE
     Dosage: FREQUENCY: ONCE BEFORE INFUSION
     Route: 042
     Dates: start: 20220126, end: 20220126
  22. SOLU-MEDROL [Concomitant]
     Active Substance: METHYLPREDNISOLONE SODIUM SUCCINATE
     Route: 042
     Dates: start: 20220725, end: 20220725
  23. SOLU-MEDROL [Concomitant]
     Active Substance: METHYLPREDNISOLONE SODIUM SUCCINATE
     Route: 042
     Dates: start: 20230126, end: 20230126
  24. ZANTAC [Concomitant]
     Active Substance: RANITIDINE HYDROCHLORIDE
     Indication: Premedication
     Route: 042
     Dates: start: 20190905, end: 20190905
  25. ZANTAC [Concomitant]
     Active Substance: RANITIDINE HYDROCHLORIDE
     Route: 042
     Dates: start: 20190923, end: 20190923
  26. ACETAMINOPHEN [Concomitant]
     Active Substance: ACETAMINOPHEN
     Indication: Premedication
     Dosage: DATE OF TREATMENT: 23/SEP/2019, 08/JUL/2020, 19/JAN/2021, 12/JUL/2021, 26/JAN/2022, 25/JUL/2022, 26/
     Route: 042
     Dates: start: 20190905, end: 20190905
  27. ACETAMINOPHEN [Concomitant]
     Active Substance: ACETAMINOPHEN
     Route: 042
     Dates: start: 20200708, end: 20200708
  28. PANTOPRAZOLE SODIUM [Concomitant]
     Active Substance: PANTOPRAZOLE SODIUM
     Indication: Premedication
     Route: 042
     Dates: start: 20200708, end: 20200708
  29. TRIMETON [Concomitant]
     Active Substance: CHLORPHENIRAMINE MALEATE
     Indication: Premedication
     Dosage: DATE OF TREATMENT: 19/JAN/2021, 12/JUL/2021, 26/JAN/2022, 25/JUL/2022, 26/JAN/2023
     Route: 042
     Dates: start: 20200708, end: 20200708
  30. AMITRIPTYLINE HYDROCHLORIDE\CHLORDIAZEPOXIDE HYDROCHLORIDE [Concomitant]
     Active Substance: AMITRIPTYLINE HYDROCHLORIDE\CHLORDIAZEPOXIDE HYDROCHLORIDE
     Dosage: 1 TABLET
     Route: 048
     Dates: start: 20201012
  31. INDOMETHACIN [Concomitant]
     Active Substance: INDOMETHACIN
     Dosage: 1 CAPSULE
     Route: 048
     Dates: start: 20201012, end: 20211013
  32. RELPAX [Concomitant]
     Active Substance: ELETRIPTAN HYDROBROMIDE
     Dosage: 1 OTHER
     Dates: start: 20210701, end: 20211013
  33. RELPAX [Concomitant]
     Active Substance: ELETRIPTAN HYDROBROMIDE
     Dosage: 1 UNIT?1 U
     Route: 048
     Dates: start: 20220404
  34. MODERNA COVID-19 VACCINE [Concomitant]
     Active Substance: ELASOMERAN
     Dosage: DOSE: 1 U?2ND DOSE: 10/MAY/2021; 3RD DOSE: 10/NOV/2021?VACCINE
     Route: 030
     Dates: start: 20210412, end: 20210412

REACTIONS (2)
  - Escherichia infection [Recovered/Resolved]
  - C-reactive protein increased [Not Recovered/Not Resolved]

NARRATIVE: CASE EVENT DATE: 20200423
